FAERS Safety Report 16491139 (Version 1)
Quarter: 2019Q2

REPORT INFORMATION
  Report Type: Spontaneous
  Country: CN (occurrence: CN)
  Receive Date: 20190628
  Receipt Date: 20190628
  Transmission Date: 20190711
  Serious: Yes (Other)
  Sender: FDA-Public Use
  Company Number: CN-ROCHE-2338525

PATIENT
  Age: 74 Year
  Sex: Female

DRUGS (13)
  1. PEMETREXED. [Concomitant]
     Active Substance: PEMETREXED
     Route: 042
     Dates: start: 20180402
  2. CARBOPLATIN. [Concomitant]
     Active Substance: CARBOPLATIN
     Indication: ADENOCARCINOMA
     Route: 042
     Dates: start: 20180309
  3. PEMETREXED. [Concomitant]
     Active Substance: PEMETREXED
     Indication: ADENOCARCINOMA
     Route: 042
     Dates: start: 20180309
  4. ZOLEDRONIC ACID [Concomitant]
     Active Substance: ZOLEDRONIC ACID
     Route: 065
     Dates: start: 20180402
  5. PACLITAXEL. [Concomitant]
     Active Substance: PACLITAXEL
     Indication: ADENOCARCINOMA
     Route: 042
     Dates: start: 20180309
  6. PACLITAXEL. [Concomitant]
     Active Substance: PACLITAXEL
     Route: 042
     Dates: start: 20180402
  7. PEMETREXED. [Concomitant]
     Active Substance: PEMETREXED
     Dosage: 2 CYCLES
     Route: 042
     Dates: start: 20180427
  8. AVASTIN [Suspect]
     Active Substance: BEVACIZUMAB
     Indication: ADENOCARCINOMA
     Route: 042
     Dates: start: 20180309
  9. AVASTIN [Suspect]
     Active Substance: BEVACIZUMAB
     Route: 042
     Dates: start: 20180402
  10. CARBOPLATIN. [Concomitant]
     Active Substance: CARBOPLATIN
     Route: 042
     Dates: start: 20180402
  11. PACLITAXEL. [Concomitant]
     Active Substance: PACLITAXEL
     Dosage: 2 CYCLES
     Route: 042
     Dates: start: 20180424
  12. CARBOPLATIN. [Concomitant]
     Active Substance: CARBOPLATIN
     Dosage: 2 CYCLES
     Route: 042
     Dates: start: 20180427
  13. AVASTIN [Suspect]
     Active Substance: BEVACIZUMAB
     Dosage: 2 CYCLES
     Route: 042
     Dates: start: 20180427

REACTIONS (3)
  - Back pain [Unknown]
  - Platelet toxicity [Unknown]
  - Ill-defined disorder [Unknown]
